FAERS Safety Report 12256081 (Version 1)
Quarter: 2016Q2

REPORT INFORMATION
  Report Type: Spontaneous
  Country: None (occurrence: None)
  Receive Date: 20160411
  Receipt Date: 20160411
  Transmission Date: 20160815
  Serious: Yes (Other)
  Sender: FDA-Public Use
  Company Number: None

PATIENT
  Age: 79 Year
  Sex: Male

DRUGS (1)
  1. ZYTIGA [Suspect]
     Active Substance: ABIRATERONE ACETATE

REACTIONS (7)
  - Back pain [None]
  - Peripheral nerve lesion [None]
  - Fatigue [None]
  - Influenza like illness [None]
  - Arthralgia [None]
  - Abasia [None]
  - Asthenia [None]

NARRATIVE: CASE EVENT DATE: 20160408
